FAERS Safety Report 9641167 (Version 1)
Quarter: 2013Q4

REPORT INFORMATION
  Report Type: Spontaneous
  Country: GB (occurrence: GB)
  Receive Date: 20131023
  Receipt Date: 20131023
  Transmission Date: 20140711
  Serious: Yes (Other)
  Sender: FDA-Public Use
  Company Number: GB-PFIZER INC-2013299983

PATIENT
  Age: 31 Year
  Sex: Female
  Weight: 101.14 kg

DRUGS (2)
  1. CHAMPIX [Suspect]
     Indication: SMOKING CESSATION THERAPY
     Dosage: 0.5 MG, UNK
     Route: 048
     Dates: start: 20131001, end: 20131003
  2. CHAMPIX [Suspect]
     Dosage: UNK
     Route: 048
     Dates: start: 201310, end: 20131006

REACTIONS (5)
  - Agitation [Recovered/Resolved]
  - Crying [Recovered/Resolved]
  - Tremor [Recovered/Resolved]
  - Mental disorder [Recovered/Resolved]
  - Activities of daily living impaired [Recovered/Resolved]
